FAERS Safety Report 7611166-4 (Version None)
Quarter: 2011Q3

REPORT INFORMATION
  Report Type: 
  Country: None (occurrence: None)
  Receive Date: 20110707
  Receipt Date: 20110628
  Transmission Date: 20111222
  Serious: Yes (Other)
  Sender: FDA-Public Use
  Company Number: US-001742

PATIENT
  Sex: Female
  Weight: 38.1022 kg

DRUGS (4)
  1. PROTEINS NOS [Concomitant]
  2. KUVAN [Suspect]
     Indication: PHENYLKETONURIA
     Dosage: (DOSE AND FREQUENCY NOT REPORTED ORAL), (400 MG QD ORAL)
     Route: 048
     Dates: start: 20101201
  3. KUVAN [Suspect]
     Indication: PHENYLKETONURIA
     Dosage: (DOSE AND FREQUENCY NOT REPORTED ORAL), (400 MG QD ORAL)
     Route: 048
     Dates: start: 20090801
  4. NUTRIENTS WITHOUT PHENYLALANINE [Concomitant]

REACTIONS (2)
  - NEPHROLITHIASIS [None]
  - URETERITIS [None]
